FAERS Safety Report 7508212-5 (Version None)
Quarter: 2011Q2

REPORT INFORMATION
  Report Type: 
  Country: None (occurrence: None)
  Receive Date: 20110527
  Receipt Date: 20110503
  Transmission Date: 20111010
  Serious: Yes (Death, Hospitalization, Other)
  Sender: FDA-Public Use
  Company Number: US-BAYER-201020467NA

PATIENT
  Age: 21 Year
  Sex: Female
  Weight: 54.422 kg

DRUGS (16)
  1. CLONAZEPAM [Concomitant]
  2. TRAZODONE HCL [Concomitant]
     Dosage: 150 MG, HS
  3. YAZ [Suspect]
  4. AMBIEN [Concomitant]
     Indication: INSOMNIA
     Dosage: UNK UNK, HS
     Dates: start: 20080226
  5. ANAPROX DS [Concomitant]
  6. CYMBALTA [Concomitant]
     Dosage: 300 MG, UNK
  7. PROTONIX [Concomitant]
     Dosage: 40 MG, UNK
     Dates: start: 20080227
  8. YAZ [Suspect]
  9. UNISOM [Concomitant]
     Indication: INSOMNIA
     Dosage: UNK
     Dates: start: 20080201, end: 20080201
  10. YAZ [Suspect]
     Indication: PREMENSTRUAL SYNDROME
     Dosage: UNK UNK, QD
     Dates: start: 20080125, end: 20080226
  11. SINGULAIR [Concomitant]
  12. FLEXERIL [Concomitant]
     Indication: INSOMNIA
  13. MULTI-VITAMIN [Concomitant]
  14. VALIUM [Concomitant]
     Indication: INSOMNIA
  15. TORADOL [Concomitant]
     Dosage: 10 MG, UNK
     Dates: start: 20080227
  16. IBUPROFEN [Concomitant]
     Indication: DYSMENORRHOEA

REACTIONS (1)
  - CONVULSION [None]
